FAERS Safety Report 9803697 (Version 1)
Quarter: 2014Q1

REPORT INFORMATION
  Report Type: Spontaneous
  Country: US (occurrence: US)
  Receive Date: 20140108
  Receipt Date: 20140108
  Transmission Date: 20141002
  Serious: No
  Sender: FDA-Public Use
  Company Number: US-GLAXOSMITHKLINE-A1024159A

PATIENT
  Sex: Female

DRUGS (3)
  1. LOVAZA [Suspect]
     Indication: BLOOD TRIGLYCERIDES INCREASED
     Dosage: 4CAP PER DAY
     Route: 048
     Dates: start: 201205
  2. BABY ASPIRIN [Concomitant]
  3. HORMONE REPLACEMENT THERAPY [Concomitant]

REACTIONS (2)
  - Mouth ulceration [Unknown]
  - Coagulation time prolonged [Unknown]
